FAERS Safety Report 9236008 (Version 1)
Quarter: 2013Q1

REPORT INFORMATION
  Report Type: Spontaneous
  Country: US (occurrence: None)
  Receive Date: 20121031
  Receipt Date: 20121031
  Transmission Date: 20140127
  Serious: Yes (Life-Threatening, Hospitalization, Other)
  Sender: FDA-Public Use
  Company Number: PHEH2012US011909

PATIENT
  Age: 52 Year
  Sex: Female
  Weight: 63.9 kg

DRUGS (12)
  1. GILENYA (FTY) CAPSULE, 0.5MG [Suspect]
     Indication: PLASMA CELL MYELOMA
     Route: 048
     Dates: start: 20120612, end: 20120612
  2. MULTIPLE VITMAINS [Concomitant]
  3. CALCIUM D SANDOZ [Concomitant]
  4. VITAMIN D [Concomitant]
  5. VITAMIN C [Concomitant]
  6. FISH OIL [Concomitant]
  7. IRON [Concomitant]
  8. GABAPENTIN [Concomitant]
  9. TAMSULOSIN [Concomitant]
  10. VESICARE [Concomitant]
  11. VACCINIUM MACROCARPON [Concomitant]
  12. IBUPROFEN [Concomitant]

REACTIONS (13)
  - Atrioventricular block second degree [None]
  - Atrioventricular block first degree [None]
  - Drug hypersensitivity [None]
  - Somnolence [None]
  - Red blood cell count decreased [None]
  - White blood cell count decreased [None]
  - Lymphocyte count decreased [None]
  - Electrocardiogram QT prolonged [None]
  - Arrhythmia [None]
  - Bradycardia [None]
  - Supraventricular extrasystoles [None]
  - Supraventricular tachycardia [None]
  - Ventricular extrasystoles [None]
